FAERS Safety Report 15966151 (Version 3)
Quarter: 2019Q2

REPORT INFORMATION
  Report Type: Spontaneous
  Country: US (occurrence: US)
  Receive Date: 20190215
  Receipt Date: 20190417
  Transmission Date: 20190711
  Serious: Yes (Other)
  Sender: FDA-Public Use
  Company Number: US-ASTRAZENECA-2018SF20955

PATIENT
  Age: 58 Year
  Sex: Male
  Weight: 114.8 kg

DRUGS (10)
  1. PREDNISONE. [Concomitant]
     Active Substance: PREDNISONE
  2. PRILOSEC [Suspect]
     Active Substance: OMEPRAZOLE MAGNESIUM
     Route: 048
     Dates: start: 20161120
  3. ASPIRIN. [Concomitant]
     Active Substance: ASPIRIN
  4. NIFEDIPINE. [Concomitant]
     Active Substance: NIFEDIPINE
  5. PRILOSEC [Suspect]
     Active Substance: OMEPRAZOLE MAGNESIUM
     Dosage: GENERIC OMPERAZOLE, 20 MG DAILY
     Route: 065
     Dates: start: 20050101, end: 20160517
  6. MYCOPHENOLIC ACID. [Concomitant]
     Active Substance: MYCOPHENOLIC ACID
  7. DAPSONE. [Concomitant]
     Active Substance: DAPSONE
  8. CARVEDILOL. [Concomitant]
     Active Substance: CARVEDILOL
  9. TACROLIMUS. [Concomitant]
     Active Substance: TACROLIMUS
  10. DOXAZOSIN [Concomitant]
     Active Substance: DOXAZOSIN\DOXAZOSIN MESYLATE

REACTIONS (6)
  - End stage renal disease [Not Recovered/Not Resolved]
  - Chronic kidney disease [Unknown]
  - Chronic kidney disease-mineral and bone disorder [Unknown]
  - Renal injury [Unknown]
  - Hyperparathyroidism secondary [Unknown]
  - Nephrogenic anaemia [Unknown]

NARRATIVE: CASE EVENT DATE: 2008
